FAERS Safety Report 18696864 (Version 1)
Quarter: 2021Q1

REPORT INFORMATION
  Report Type: Spontaneous
  Country: US (occurrence: US)
  Receive Date: 20210104
  Receipt Date: 20210104
  Transmission Date: 20210419
  Serious: Yes (Death, Other)
  Sender: FDA-Public Use
  Company Number: US-ROCHE-2504208

PATIENT
  Age: 72 Year
  Sex: Female
  Weight: 71.5 kg

DRUGS (8)
  1. NEPHRO?VITE (UNITED STATES) [Concomitant]
     Indication: END STAGE RENAL DISEASE
     Route: 048
  2. ACTIVASE [Suspect]
     Active Substance: ALTEPLASE
     Indication: ISCHAEMIC STROKE
     Route: 042
     Dates: start: 2019
  3. JANUVIA [Concomitant]
     Active Substance: SITAGLIPTIN PHOSPHATE
     Route: 048
  4. ASPIRIN. [Concomitant]
     Active Substance: ASPIRIN
     Route: 048
  5. RENAGEL [Concomitant]
     Active Substance: SEVELAMER HYDROCHLORIDE
     Indication: END STAGE RENAL DISEASE
     Route: 048
  6. SENSIPAR [Concomitant]
     Active Substance: CINACALCET HYDROCHLORIDE
     Indication: END STAGE RENAL DISEASE
     Route: 046
  7. LIPITOR [Concomitant]
     Active Substance: ATORVASTATIN CALCIUM
     Indication: HYPERLIPIDAEMIA
     Route: 048
  8. ACTIVASE [Suspect]
     Active Substance: ALTEPLASE
     Dosage: ONCE
     Route: 042
     Dates: start: 20190306, end: 20190306

REACTIONS (2)
  - Haemorrhagic transformation stroke [Fatal]
  - Haemorrhage intracranial [Not Recovered/Not Resolved]

NARRATIVE: CASE EVENT DATE: 2019
